FAERS Safety Report 19731806 (Version 1)
Quarter: 2021Q3

REPORT INFORMATION
  Report Type: Spontaneous
  Country: JP (occurrence: JP)
  Receive Date: 20210820
  Receipt Date: 20210820
  Transmission Date: 20211014
  Serious: Yes (Other)
  Sender: FDA-Public Use
  Company Number: JP-TAKEDA-2021TUS051607

PATIENT

DRUGS (1)
  1. LIALDA [Suspect]
     Active Substance: MESALAMINE
     Indication: COLITIS ULCERATIVE
     Dosage: 4800 MILLIGRAM, QD
     Route: 048

REACTIONS (20)
  - Enteritis infectious [Unknown]
  - Abdominal pain upper [Unknown]
  - Focal peritonitis [Unknown]
  - Liver disorder [Unknown]
  - Infection [Unknown]
  - Circumoral oedema [Unknown]
  - Anaemia [Unknown]
  - Hypersensitivity [Unknown]
  - Inguinal hernia [Unknown]
  - Arthralgia [Unknown]
  - Nasopharyngitis [Unknown]
  - Skin abrasion [Unknown]
  - Drug intolerance [Unknown]
  - Cystitis [Unknown]
  - Alopecia [Unknown]
  - Cough [Unknown]
  - Irritable bowel syndrome [Unknown]
  - Cataract [Unknown]
  - Drug ineffective [Unknown]
  - Rash [Unknown]
